FAERS Safety Report 5498059-6 (Version None)
Quarter: 2007Q4

REPORT INFORMATION
  Report Type: 
  Country: None (occurrence: None)
  Receive Date: 20071025
  Receipt Date: 20071015
  Transmission Date: 20080405
  Serious: Yes (Other)
  Sender: FDA-Public Use
  Company Number: US-JNJFOC-20070804675

PATIENT
  Sex: Female
  Weight: 93.9 kg

DRUGS (7)
  1. REMICADE [Suspect]
     Indication: CROHN'S DISEASE
     Route: 042
  2. TAGAMET [Concomitant]
     Indication: GASTROOESOPHAGEAL REFLUX DISEASE
  3. TRIAVIL [Concomitant]
     Indication: HYPERTENSION
     Dosage: DOSAGE 2/25 MG
  4. AZATHIOPRINE [Concomitant]
     Indication: CROHN'S DISEASE
  5. LIPITOR [Concomitant]
     Indication: HYPERCHOLESTEROLAEMIA
  6. M.V.I. [Concomitant]
     Indication: PROPHYLAXIS
     Dosage: DOSAGE ONE DAILY
  7. CALCIUM WITH VITAMIN D [Concomitant]
     Indication: PROPHYLAXIS
     Dosage: DOSAGE ONE DAILY

REACTIONS (1)
  - LUNG NEOPLASM MALIGNANT [None]
